FAERS Safety Report 17082402 (Version 1)
Quarter: 2019Q4

REPORT INFORMATION
  Report Type: Spontaneous
  Country: US (occurrence: US)
  Receive Date: 20191127
  Receipt Date: 20191127
  Transmission Date: 20200122
  Serious: No
  Sender: FDA-Public Use
  Company Number: US-GLAXOSMITHKLINE-US2019AMR212732

PATIENT
  Sex: Male

DRUGS (20)
  1. LAMICTAL [Suspect]
     Active Substance: LAMOTRIGINE
     Indication: MYOCLONIC EPILEPSY
     Dosage: UNK
     Route: 065
  2. LAMICTAL [Suspect]
     Active Substance: LAMOTRIGINE
     Indication: PETIT MAL EPILEPSY
  3. LAMICTAL [Suspect]
     Active Substance: LAMOTRIGINE
     Indication: DROP ATTACKS
  4. TOPAMAX [Suspect]
     Active Substance: TOPIRAMATE
     Indication: PETIT MAL EPILEPSY
  5. KEPPRA [Concomitant]
     Active Substance: LEVETIRACETAM
     Indication: DROP ATTACKS
  6. KEPPRA [Concomitant]
     Active Substance: LEVETIRACETAM
     Indication: PETIT MAL EPILEPSY
  7. TRILEPTAL [Concomitant]
     Active Substance: OXCARBAZEPINE
     Indication: GENERALISED TONIC-CLONIC SEIZURE
  8. LYRICA [Concomitant]
     Active Substance: PREGABALIN
     Indication: DROP ATTACKS
  9. LYRICA [Concomitant]
     Active Substance: PREGABALIN
     Indication: GENERALISED TONIC-CLONIC SEIZURE
  10. TRILEPTAL [Concomitant]
     Active Substance: OXCARBAZEPINE
     Indication: PETIT MAL EPILEPSY
  11. LYRICA [Concomitant]
     Active Substance: PREGABALIN
     Indication: PETIT MAL EPILEPSY
     Dosage: UNK
     Route: 065
  12. LAMICTAL [Suspect]
     Active Substance: LAMOTRIGINE
     Indication: GENERALISED TONIC-CLONIC SEIZURE
  13. TOPAMAX [Suspect]
     Active Substance: TOPIRAMATE
     Indication: GENERALISED TONIC-CLONIC SEIZURE
     Dosage: UNK
     Route: 065
  14. KEPPRA [Concomitant]
     Active Substance: LEVETIRACETAM
     Indication: GENERALISED TONIC-CLONIC SEIZURE
  15. TRILEPTAL [Concomitant]
     Active Substance: OXCARBAZEPINE
     Indication: DROP ATTACKS
  16. TOPAMAX [Suspect]
     Active Substance: TOPIRAMATE
     Indication: DROP ATTACKS
  17. TOPAMAX [Suspect]
     Active Substance: TOPIRAMATE
     Indication: MYOCLONIC EPILEPSY
  18. TRILEPTAL [Concomitant]
     Active Substance: OXCARBAZEPINE
     Indication: MYOCLONIC EPILEPSY
     Dosage: UNK
     Route: 065
  19. KEPPRA [Concomitant]
     Active Substance: LEVETIRACETAM
     Indication: MYOCLONIC EPILEPSY
     Dosage: UNK
     Route: 065
  20. LYRICA [Concomitant]
     Active Substance: PREGABALIN
     Indication: MYOCLONIC EPILEPSY

REACTIONS (2)
  - Drug ineffective [Unknown]
  - Stress [Unknown]
